FAERS Safety Report 13836222 (Version 5)
Quarter: 2017Q4

REPORT INFORMATION
  Report Type: Report from Study
  Country: US (occurrence: US)
  Receive Date: 20170804
  Receipt Date: 20171106
  Transmission Date: 20180320
  Serious: Yes (Other)
  Sender: FDA-Public Use
  Company Number: US-PFIZER INC-2017256525

PATIENT
  Age: 69 Year
  Sex: Female
  Weight: 58.4 kg

DRUGS (4)
  1. IBRANCE [Suspect]
     Active Substance: PALBOCICLIB
     Indication: BREAST CANCER METASTATIC
     Dosage: 125 MG, CYCLIC (DAILY FOR 21 DAYS)
     Route: 048
     Dates: start: 20170530
  2. TOREMIFENE [Concomitant]
     Active Substance: TOREMIFENE
     Indication: BREAST CANCER RECURRENT
     Dosage: UNK
     Dates: start: 201412
  3. IBRANCE [Suspect]
     Active Substance: PALBOCICLIB
     Dosage: 125 MG, CYCLIC
     Route: 048
     Dates: start: 20170608
  4. PREVACID [Concomitant]
     Active Substance: LANSOPRAZOLE
     Dosage: UNK

REACTIONS (10)
  - Vertigo [Recovering/Resolving]
  - Headache [Unknown]
  - Fatigue [Unknown]
  - Back pain [Unknown]
  - Vomiting [Recovered/Resolved]
  - Dizziness [Unknown]
  - Dyspepsia [Unknown]
  - Dehydration [Recovered/Resolved]
  - Leukopenia [Unknown]
  - Nausea [Unknown]

NARRATIVE: CASE EVENT DATE: 2017
